FAERS Safety Report 26074248 (Version 1)
Quarter: 2025Q4

REPORT INFORMATION
  Report Type: Spontaneous
  Country: US (occurrence: US)
  Receive Date: 20251121
  Receipt Date: 20251121
  Transmission Date: 20260118
  Serious: Yes (Other)
  Sender: NOVO NORDISK
  Company Number: US-NOVOPROD-1565804

PATIENT
  Age: 10 Year
  Sex: Male

DRUGS (3)
  1. NORDITROPIN [Suspect]
     Active Substance: SOMATROPIN
     Indication: Growth hormone deficiency
     Dosage: ONCE A DAY IN THE AFTERNOON
     Route: 058
     Dates: start: 2025
  2. NORDITROPIN [Suspect]
     Active Substance: SOMATROPIN
     Dosage: ONCE A DAY IN THE AFTERNOON
     Route: 058
     Dates: start: 20251030, end: 20251107
  3. NORDITROPIN [Suspect]
     Active Substance: SOMATROPIN
     Dosage: ONCE A DAY IN THE AFTERNOON
     Route: 058
     Dates: start: 20251015, end: 20251023

REACTIONS (8)
  - Depression [Recovering/Resolving]
  - Anxiety [Recovering/Resolving]
  - Hyperventilation [Recovering/Resolving]
  - Mood altered [Recovering/Resolving]
  - Oropharyngeal pain [Recovered/Resolved]
  - Joint swelling [Recovered/Resolved]
  - Viral infection [Recovered/Resolved]
  - Arthralgia [Recovered/Resolved]

NARRATIVE: CASE EVENT DATE: 20251016
